FAERS Safety Report 9214999 (Version 1)
Quarter: 2013Q2

REPORT INFORMATION
  Report Type: Spontaneous
  Country: IT (occurrence: IT)
  Receive Date: 20130405
  Receipt Date: 20130405
  Transmission Date: 20140414
  Serious: Yes (Other)
  Sender: FDA-Public Use
  Company Number: PHHY2013IT032448

PATIENT
  Sex: Male

DRUGS (1)
  1. AMOXICILLIN [Suspect]
     Indication: TOOTH EXTRACTION
     Dosage: 1 G, TOTAL
     Route: 048
     Dates: start: 20130314, end: 20130314

REACTIONS (2)
  - Hypotension [Recovered/Resolved]
  - Anaphylactic shock [Recovered/Resolved]
